FAERS Safety Report 6253574-2 (Version None)
Quarter: 2009Q2

REPORT INFORMATION
  Report Type: 
  Country: None (occurrence: None)
  Receive Date: 20090630
  Receipt Date: 20090625
  Transmission Date: 20091009
  Serious: Yes (Other)
  Sender: FDA-Public Use
  Company Number: SPV1-2009-01320

PATIENT
  Age: 13 Year
  Sex: Male
  Weight: 47.6 kg

DRUGS (3)
  1. DAYTRANA [Suspect]
     Indication: ATTENTION DEFICIT/HYPERACTIVITY DISORDER
     Dosage: 30 MG, 1 X/DAY:QD, TRANSDERMAL
     Route: 062
     Dates: start: 20070101, end: 20090622
  2. FOCALIN [Concomitant]
  3. ALBUTEROL /00139501/ (SALBUTAMOL) [Concomitant]

REACTIONS (5)
  - AUTISM [None]
  - GRAND MAL CONVULSION [None]
  - HEADACHE [None]
  - OFF LABEL USE [None]
  - PETIT MAL EPILEPSY [None]
